FAERS Safety Report 7864184-5 (Version None)
Quarter: 2011Q4

REPORT INFORMATION
  Report Type: 
  Country: None (occurrence: None)
  Receive Date: 20111028
  Receipt Date: 20111025
  Transmission Date: 20120403
  Serious: Yes (Death)
  Sender: FDA-Public Use
  Company Number: US-PFIZER INC-2011260989

PATIENT
  Age: 75 Year
  Sex: Male

DRUGS (3)
  1. VANCOMYCIN HCL [Suspect]
     Indication: ANTIBIOTIC PROPHYLAXIS
     Dosage: 500 MG, EVERY 6 HOURS
     Route: 048
     Dates: start: 20110930, end: 20111003
  2. DIFICID [Suspect]
     Dosage: 200 MG, 2X/DAY
     Dates: start: 20111002
  3. FLAGYL [Suspect]
     Indication: ANTIBIOTIC PROPHYLAXIS
     Dosage: 500 MG
     Route: 048
     Dates: start: 20110930, end: 20111003

REACTIONS (1)
  - DEATH [None]
